FAERS Safety Report 19655841 (Version 1)
Quarter: 2021Q3

REPORT INFORMATION
  Report Type: Spontaneous
  Country: US (occurrence: US)
  Receive Date: 20210804
  Receipt Date: 20210804
  Transmission Date: 20211014
  Serious: Yes (Other)
  Sender: FDA-Public Use
  Company Number: US-MYLANLABS-2021M1047990

PATIENT
  Age: 7 Decade
  Sex: Male

DRUGS (3)
  1. DENOSUMAB [Suspect]
     Active Substance: DENOSUMAB
     Indication: BONE LESION
     Dosage: UNK
     Route: 065
  2. DOCETAXEL. [Suspect]
     Active Substance: DOCETAXEL
     Indication: PROSTATE CANCER STAGE IV
     Dosage: RECEIVED 6 CYCLES
     Route: 065
  3. BICALUTAMIDE. [Suspect]
     Active Substance: BICALUTAMIDE
     Indication: PROSTATE CANCER STAGE IV
     Dosage: UNK
     Route: 048

REACTIONS (1)
  - Drug ineffective [Unknown]
